FAERS Safety Report 15327658 (Version 2)
Quarter: 2018Q4

REPORT INFORMATION
  Report Type: Spontaneous
  Country: US (occurrence: US)
  Receive Date: 20180828
  Receipt Date: 20181110
  Transmission Date: 20190204
  Serious: Yes (Other)
  Sender: FDA-Public Use
  Company Number: US-009507513-1808USA009247

PATIENT
  Age: 87 Year
  Sex: Female

DRUGS (1)
  1. ZETIA [Suspect]
     Active Substance: EZETIMIBE
     Indication: BLOOD CHOLESTEROL INCREASED
     Dosage: ONCE A DAY
     Route: 048
     Dates: start: 20180515, end: 20180527

REACTIONS (7)
  - Gait disturbance [Recovering/Resolving]
  - Cough [Recovering/Resolving]
  - Myalgia [Recovering/Resolving]
  - Melaena [Recovering/Resolving]
  - Dyspnoea [Recovering/Resolving]
  - Gait inability [Recovering/Resolving]
  - Muscle tightness [Recovering/Resolving]

NARRATIVE: CASE EVENT DATE: 20180520
